FAERS Safety Report 25579096 (Version 1)
Quarter: 2025Q3

REPORT INFORMATION
  Report Type: Spontaneous
  Country: US (occurrence: US)
  Receive Date: 20250718
  Receipt Date: 20250718
  Transmission Date: 20251021
  Serious: Yes (Hospitalization)
  Sender: RIGEL PHARMACEUTICALS
  Company Number: US-RIGEL Pharmaceuticals, INC-20250700104

PATIENT
  Age: 59 Year
  Sex: Male
  Weight: 91.258 kg

DRUGS (2)
  1. GAVRETO [Suspect]
     Active Substance: PRALSETINIB
     Indication: Lung neoplasm malignant
     Dosage: 300 MG DAILY
     Route: 048
     Dates: start: 20230626
  2. GAVRETO [Suspect]
     Active Substance: PRALSETINIB
     Dosage: 300 MG DAILY
     Route: 048

REACTIONS (4)
  - Spinal operation [Recovering/Resolving]
  - Product prescribing issue [Unknown]
  - Back pain [Unknown]
  - Diarrhoea [Recovering/Resolving]

NARRATIVE: CASE EVENT DATE: 20230626
